FAERS Safety Report 7510823-8 (Version None)
Quarter: 2011Q2

REPORT INFORMATION
  Report Type: 
  Country: None (occurrence: None)
  Receive Date: 20110531
  Receipt Date: 20101115
  Transmission Date: 20111010
  Serious: No
  Sender: FDA-Public Use
  Company Number: US-BIOGENIDEC-2010BI036566

PATIENT
  Sex: Female

DRUGS (2)
  1. TYSABRI [Suspect]
     Indication: MULTIPLE SCLEROSIS
     Route: 042
     Dates: start: 20070212, end: 20081209
  2. TYSABRI [Suspect]
     Route: 042
     Dates: start: 20090610, end: 20100917

REACTIONS (2)
  - DRUG SPECIFIC ANTIBODY PRESENT [None]
  - JC VIRUS TEST POSITIVE [None]
